FAERS Safety Report 9415228 (Version 1)
Quarter: 2013Q3

REPORT INFORMATION
  Report Type: Report from Study
  Country: BR (occurrence: BR)
  Receive Date: 20130723
  Receipt Date: 20130723
  Transmission Date: 20140515
  Serious: Yes (Other)
  Sender: FDA-Public Use
  Company Number: PHHY2013BR077697

PATIENT
  Sex: Female
  Weight: 80 kg

DRUGS (6)
  1. ACLASTA [Suspect]
     Indication: OSTEOPOROSIS
     Dosage: 5 MG, UNK
     Route: 042
     Dates: start: 201107
  2. ACLASTA [Suspect]
     Dosage: 5 MG, UNK
     Route: 042
     Dates: start: 201207
  3. PROCIMAX [Concomitant]
     Indication: DEPRESSION
     Dosage: UNK UKN, QD
     Route: 048
  4. DIOVAN [Concomitant]
     Indication: HYPERTENSION
     Dosage: UNK UKN, QD
     Route: 048
  5. VASLIP [Concomitant]
     Indication: BLOOD CHOLESTEROL INCREASED
     Dosage: UNK UKN, QD
     Route: 048
  6. MAREVAN [Concomitant]
     Indication: THROMBOSIS
     Dosage: UNK UKN, QD
     Route: 048

REACTIONS (3)
  - Throat cancer [Not Recovered/Not Resolved]
  - Vocal cord neoplasm [Not Recovered/Not Resolved]
  - Aphonia [Not Recovered/Not Resolved]
